FAERS Safety Report 6493497-7 (Version None)
Quarter: 2009Q4

REPORT INFORMATION
  Report Type: 
  Country: None (occurrence: None)
  Receive Date: 20091209
  Receipt Date: 20091124
  Transmission Date: 20100525
  Serious: Yes (Death)
  Sender: FDA-Public Use
  Company Number: 007664

PATIENT
  Age: 84 Year
  Sex: Female

DRUGS (5)
  1. PLETAL [Suspect]
     Indication: ARTERIOSCLEROSIS OBLITERANS
     Dosage: 100 MG, BID, ORAL
     Route: 048
     Dates: start: 20080815, end: 20090301
  2. ASPIRIN [Suspect]
     Indication: ARTERIOSCLEROSIS OBLITERANS
     Dosage: 100 MG, QD, ORAL
     Route: 048
     Dates: end: 20090301
  3. ANGIOTENSIN 11 RECEPTER BLOCKER [Concomitant]
  4. ANTIDIABETIC AGENTS [Concomitant]
  5. DISOPYRAMIDE [Concomitant]

REACTIONS (2)
  - CEREBRAL INFARCTION [None]
  - GLYCOSYLATED HAEMOGLOBIN INCREASED [None]
